FAERS Safety Report 5737545-8 (Version None)
Quarter: 2008Q2

REPORT INFORMATION
  Report Type: 
  Country: None (occurrence: None)
  Receive Date: 20080514
  Receipt Date: 20080506
  Transmission Date: 20081010
  Serious: Yes (Other)
  Sender: FDA-Public Use
  Company Number: BE-BAYER-200817911GPV

PATIENT
  Age: 31 Year
  Sex: Female

DRUGS (1)
  1. AVELOX [Suspect]
     Indication: UPPER RESPIRATORY TRACT INFECTION
     Dosage: UNIT DOSE: 400 MG
     Route: 048

REACTIONS (7)
  - EYE PAIN [None]
  - HEADACHE [None]
  - IRIDOCYCLITIS [None]
  - IRIS HYPOPIGMENTATION [None]
  - MYDRIASIS [None]
  - PHOTOPHOBIA [None]
  - VISUAL ACUITY REDUCED [None]
